FAERS Safety Report 25112916 (Version 4)
Quarter: 2025Q4

REPORT INFORMATION
  Report Type: Spontaneous
  Country: US (occurrence: None)
  Receive Date: 20250324
  Receipt Date: 20251031
  Transmission Date: 20260117
  Serious: No
  Sender: UCB
  Company Number: US-UCBSA-2024067941

PATIENT
  Age: 56 Year
  Weight: 77.098 kg

DRUGS (1)
  1. BIMZELX [Suspect]
     Active Substance: BIMEKIZUMAB-BKZX
     Indication: Ankylosing spondylitis
     Dosage: 160 MILLIGRAM, EV 4 WEEKS

REACTIONS (4)
  - Gastrooesophageal reflux disease [Unknown]
  - Rash [Unknown]
  - Candida infection [Unknown]
  - Pyrexia [Unknown]
